FAERS Safety Report 14615344 (Version 3)
Quarter: 2018Q3

REPORT INFORMATION
  Report Type: Report from Study
  Country: JP (occurrence: JP)
  Receive Date: 20180308
  Receipt Date: 20180719
  Transmission Date: 20181010
  Serious: Yes (Hospitalization, Other)
  Sender: FDA-Public Use
  Company Number: JP-INCYTE CORPORATION-2018IN001828

PATIENT

DRUGS (22)
  1. JAKAVI [Suspect]
     Active Substance: RUXOLITINIB
     Dosage: 5 MG, QD
     Route: 048
     Dates: start: 20170724, end: 20170731
  2. JAKAVI [Suspect]
     Active Substance: RUXOLITINIB
     Dosage: 5 MG, BID
     Route: 048
     Dates: start: 20170824, end: 20171220
  3. HYDREA [Suspect]
     Active Substance: HYDROXYUREA
     Indication: THROMBOCYTOSIS
     Dosage: 1000 MG, UNK
     Route: 048
     Dates: start: 20171113, end: 20171115
  4. AGRYLIN [Suspect]
     Active Substance: ANAGRELIDE HYDROCHLORIDE
     Dosage: 3 MG, UNK
     Route: 048
     Dates: start: 20170626, end: 20170702
  5. AGRYLIN [Suspect]
     Active Substance: ANAGRELIDE HYDROCHLORIDE
     Dosage: 3 MG, UNK
     Route: 048
     Dates: start: 20170824, end: 20170920
  6. LUPRAC [Suspect]
     Active Substance: TORSEMIDE
     Indication: CARDIAC FAILURE
     Dosage: 4 MG, UNK
     Route: 048
     Dates: start: 20170731, end: 20171126
  7. HYDREA [Suspect]
     Active Substance: HYDROXYUREA
     Indication: POLYCYTHAEMIA VERA
     Dosage: 500 MG, UNK
     Route: 048
     Dates: start: 20171109, end: 20171112
  8. JAKAVI [Suspect]
     Active Substance: RUXOLITINIB
     Indication: POLYCYTHAEMIA VERA
     Dosage: 5 MG, BID
     Route: 048
     Dates: start: 20170619, end: 20170723
  9. HYDREA [Suspect]
     Active Substance: HYDROXYUREA
     Dosage: 1000 MG, UNK
     Route: 048
     Dates: start: 20171130, end: 20171211
  10. AGRYLIN [Suspect]
     Active Substance: ANAGRELIDE HYDROCHLORIDE
     Indication: THROMBOCYTOSIS
     Dosage: 2 MG, UNK
     Route: 048
     Dates: end: 20170625
  11. LUPRAC [Suspect]
     Active Substance: TORSEMIDE
     Indication: OEDEMA PERIPHERAL
     Dosage: 2 MG, UNK
     Route: 048
     Dates: start: 20170724, end: 20170730
  12. HYDREA [Suspect]
     Active Substance: HYDROXYUREA
     Dosage: 500 MG, UNK
     Route: 048
     Dates: start: 20171212, end: 20171218
  13. AGRYLIN [Suspect]
     Active Substance: ANAGRELIDE HYDROCHLORIDE
     Dosage: 4 MG, UNK
     Route: 048
     Dates: start: 20170703, end: 20170823
  14. AGRYLIN [Suspect]
     Active Substance: ANAGRELIDE HYDROCHLORIDE
     Dosage: 3.5 MG, UNK
     Route: 048
     Dates: start: 20170921, end: 20171108
  15. LUPRAC [Suspect]
     Active Substance: TORSEMIDE
     Dosage: 4 MG, UNK
     Route: 048
     Dates: start: 20171205
  16. HYDROCHLOROTHIAZIDE. [Suspect]
     Active Substance: HYDROCHLOROTHIAZIDE
     Indication: CARDIAC FAILURE
     Dosage: 25 MG, UNK
     Route: 048
     Dates: start: 20171127, end: 20171203
  17. AGRYLIN [Suspect]
     Active Substance: ANAGRELIDE HYDROCHLORIDE
     Dosage: 2 MG, UNK
     Route: 048
     Dates: start: 20171109, end: 20171127
  18. LUPRAC [Suspect]
     Active Substance: TORSEMIDE
     Dosage: 8 MG, UNK
     Route: 048
     Dates: start: 20171127, end: 20171204
  19. ALKERAN [Concomitant]
     Active Substance: MELPHALAN
     Indication: POLYCYTHAEMIA VERA
     Dosage: 2 MG, QW
     Route: 048
     Dates: start: 20171113
  20. JAKAVI [Suspect]
     Active Substance: RUXOLITINIB
     Dosage: 5 MG, QD
     Route: 048
     Dates: start: 20171221, end: 20171225
  21. HYDREA [Suspect]
     Active Substance: HYDROXYUREA
     Dosage: 1500 MG, UNK
     Route: 048
     Dates: start: 20171116, end: 20171129
  22. ALKERAN [Concomitant]
     Active Substance: MELPHALAN
     Indication: THROMBOCYTOSIS

REACTIONS (8)
  - Renal impairment [Recovered/Resolved]
  - Sinusitis [Recovering/Resolving]
  - Hyperuricaemia [Recovering/Resolving]
  - Palpitations [Unknown]
  - Oedema peripheral [Recovering/Resolving]
  - Bone marrow failure [Recovering/Resolving]
  - Cardiac failure [Recovering/Resolving]
  - Dyspnoea exertional [Unknown]

NARRATIVE: CASE EVENT DATE: 20170724
